FAERS Safety Report 5209067-4 (Version None)
Quarter: 2007Q1

REPORT INFORMATION
  Report Type: 
  Country: None (occurrence: None)
  Receive Date: 20070116
  Receipt Date: 20070110
  Transmission Date: 20070707
  Serious: Yes (Other)
  Sender: FDA-Public Use
  Company Number: 2007AP00407

PATIENT
  Age: 70 Year
  Sex: Female

DRUGS (3)
  1. OMEPRAL [Suspect]
     Indication: REFLUX OESOPHAGITIS
     Route: 048
     Dates: start: 20061215
  2. GASMOTIN [Concomitant]
     Route: 048
     Dates: start: 20061128
  3. NITROPEN [Concomitant]
     Route: 048

REACTIONS (1)
  - MUSCULOSKELETAL STIFFNESS [None]
